FAERS Safety Report 24533515 (Version 2)
Quarter: 2025Q3

REPORT INFORMATION
  Report Type: Report from Study
  Country: US (occurrence: US)
  Receive Date: 20241022
  Receipt Date: 20250809
  Transmission Date: 20251020
  Serious: Yes (Hospitalization, Other)
  Sender: ALEXION PHARMACEUTICALS
  Company Number: US-AstraZeneca-CH-00716630A

PATIENT
  Sex: Female

DRUGS (1)
  1. OSIMERTINIB [Suspect]
     Active Substance: OSIMERTINIB

REACTIONS (8)
  - Syncope [Unknown]
  - Blood pressure abnormal [Unknown]
  - Vomiting [Unknown]
  - Dehydration [Unknown]
  - Urinary tract infection [Unknown]
  - Anaemia [Unknown]
  - Constipation [Unknown]
  - Scratch [Unknown]
